FAERS Safety Report 18487456 (Version 17)
Quarter: 2023Q4

REPORT INFORMATION
  Report Type: Spontaneous
  Country: CA (occurrence: CA)
  Receive Date: 20201111
  Receipt Date: 20231123
  Transmission Date: 20240110
  Serious: Yes (Other)
  Sender: FDA-Public Use
  Company Number: CA-CELLTRION INC.-2020CA027782

PATIENT

DRUGS (15)
  1. INFLECTRA [Suspect]
     Active Substance: INFLIXIMAB-DYYB
     Indication: Takayasu^s arteritis
     Dosage: 300 MG, EVERY 8 WEEKS
     Route: 042
     Dates: start: 20200911
  2. INFLECTRA [Suspect]
     Active Substance: INFLIXIMAB-DYYB
     Dosage: 300 MG ,EVERY 8 WEEKS
     Route: 042
     Dates: start: 20201103
  3. INFLECTRA [Suspect]
     Active Substance: INFLIXIMAB-DYYB
     Dosage: 300 MG, EVERY 8 WEEKS
     Route: 042
     Dates: start: 20210104
  4. INFLECTRA [Suspect]
     Active Substance: INFLIXIMAB-DYYB
     Dosage: 300 MG, EVERY 8 WEEKS
     Route: 042
     Dates: start: 20210304
  5. INFLECTRA [Suspect]
     Active Substance: INFLIXIMAB-DYYB
     Dosage: 300 MG, EVERY 8 WEEKS
     Route: 042
     Dates: start: 20210428
  6. INFLECTRA [Suspect]
     Active Substance: INFLIXIMAB-DYYB
     Dosage: 300 MG, EVERY 8 WEEKS
     Route: 042
     Dates: start: 20210623
  7. INFLECTRA [Suspect]
     Active Substance: INFLIXIMAB-DYYB
     Dosage: 300 MG, EVERY 8 WEEKS
     Route: 042
     Dates: start: 20211013
  8. INFLECTRA [Suspect]
     Active Substance: INFLIXIMAB-DYYB
     Dosage: 220 MG, EVERY 8 WEEKS
     Route: 042
     Dates: start: 20211210
  9. INFLECTRA [Suspect]
     Active Substance: INFLIXIMAB-DYYB
     Dosage: 220 MG, EVERY 8 WEEKS
     Route: 042
     Dates: start: 20221114
  10. INFLECTRA [Suspect]
     Active Substance: INFLIXIMAB-DYYB
     Dosage: 220 MG, EVERY 8 WEEKS
     Route: 042
     Dates: start: 20230301
  11. INFLECTRA [Suspect]
     Active Substance: INFLIXIMAB-DYYB
     Dosage: 220MG, 9 WEEKS, 6 DAYS (SUPPOSE TO RECEIVE EVERY 8 WEEKS)
     Route: 042
     Dates: start: 20230509
  12. INFLECTRA [Suspect]
     Active Substance: INFLIXIMAB-DYYB
     Dosage: 220MG,  EVERY 8 WEEKS
     Route: 042
     Dates: start: 20230630, end: 20230630
  13. INFLECTRA [Suspect]
     Active Substance: INFLIXIMAB-DYYB
     Dosage: 220MG, EVERY 8 WEEKS
     Route: 042
     Dates: start: 20230907
  14. INFLECTRA [Suspect]
     Active Substance: INFLIXIMAB-DYYB
     Dosage: 220MG, 9 WEEKS AND 6 DAYS, (EVERY 8 WEEK)
     Route: 042
     Dates: start: 20231115
  15. INFLECTRA [Suspect]
     Active Substance: INFLIXIMAB-DYYB
     Dosage: 220MG, 9 WEEKS AND 6 DAYS, (EVERY 8 WEEK)
     Route: 042
     Dates: start: 20231115

REACTIONS (10)
  - Abdominoplasty [Recovering/Resolving]
  - Weight decreased [Not Recovered/Not Resolved]
  - Off label use [Unknown]
  - Drug monitoring procedure not performed [Unknown]
  - Inappropriate schedule of product administration [Unknown]
  - Dermatitis contact [Recovering/Resolving]
  - Pain [Not Recovered/Not Resolved]
  - Extravasation [Unknown]
  - Illness [Unknown]
  - Malaise [Unknown]

NARRATIVE: CASE EVENT DATE: 20200101
